FAERS Safety Report 18161149 (Version 2)
Quarter: 2020Q3

REPORT INFORMATION
  Report Type: Spontaneous
  Country: ES (occurrence: ES)
  Receive Date: 20200818
  Receipt Date: 20200911
  Transmission Date: 20201103
  Serious: Yes (Other)
  Sender: FDA-Public Use
  Company Number: ES-TEVA-2020-ES-1814314

PATIENT
  Age: 64 Year
  Sex: Male
  Weight: 75 kg

DRUGS (17)
  1. DEXAMETASONA (722A) [Suspect]
     Active Substance: DEXAMETHASONE
     Indication: COVID-19
  2. CEFTRIAXONA (501A) [Suspect]
     Active Substance: CEFTRIAXONE
     Indication: COVID-19 PNEUMONIA
     Dosage: 2 GRAM DAILY;
     Route: 042
     Dates: start: 20200721, end: 20200725
  3. AZITROMICINA (7019A) [Suspect]
     Active Substance: AZITHROMYCIN
     Indication: COVID-19
  4. CEFTRIAXONA (501A) [Suspect]
     Active Substance: CEFTRIAXONE
     Indication: COVID-19
  5. REMDESIVIR (10009A) [Suspect]
     Active Substance: REMDESIVIR
     Indication: COVID-19
  6. REMDESIVIR (10009A) [Suspect]
     Active Substance: REMDESIVIR
     Indication: COVID-19 PNEUMONIA
     Dosage: 100 MG C/24H
     Route: 041
     Dates: start: 20200723
  7. HIDROXICLOROQUINA (2143A) [Suspect]
     Active Substance: HYDROXYCHLOROQUINE
     Indication: COVID-19 PNEUMONIA
  8. DEXAMETASONA (722A) [Suspect]
     Active Substance: DEXAMETHASONE
     Indication: COVID-19 PNEUMONIA
     Dosage: 6MG C/24
     Route: 042
     Dates: start: 20200722, end: 20200725
  9. HIDROXICLOROQUINA (2143A) [Suspect]
     Active Substance: HYDROXYCHLOROQUINE
     Indication: COVID-19
     Dosage: 400 MG C / 12H DC AND 200MG C / 12 MAINT
     Route: 048
     Dates: start: 20200721, end: 20200726
  10. AZITROMICINA (7019A) [Suspect]
     Active Substance: AZITHROMYCIN
     Indication: COVID-19 PNEUMONIA
     Dosage: 500MG SHOCK DOSE AND 250 MG C / 24H MAINTENANCE
     Route: 048
     Dates: start: 20200721, end: 20200725
  11. MIDAZOLAM (2256A) [Concomitant]
     Active Substance: MIDAZOLAM
     Dates: start: 202007
  12. ENOXAPARINA (2482A) [Concomitant]
     Active Substance: ENOXAPARIN
     Dates: start: 202007
  13. CISATRACURIO (2738A) [Concomitant]
     Active Substance: CISATRACURIUM BESYLATE
     Dates: start: 202007
  14. FENTANILO (1543A) [Concomitant]
     Active Substance: FENTANYL
     Dates: start: 202007
  15. PARACETAMOL (12A) [Concomitant]
     Active Substance: ACETAMINOPHEN
     Dates: start: 202007
  16. OMEPRAZOL (2141A) [Concomitant]
     Active Substance: OMEPRAZOLE
     Dates: start: 202007
  17. ENALAPRIL (2142A) [Concomitant]
     Active Substance: ENALAPRIL
     Dates: start: 202007

REACTIONS (1)
  - Liver disorder [Recovering/Resolving]

NARRATIVE: CASE EVENT DATE: 202007
